FAERS Safety Report 6282897-6 (Version None)
Quarter: 2009Q3

REPORT INFORMATION
  Report Type: 
  Country: None (occurrence: None)
  Receive Date: 20090722
  Receipt Date: 20090708
  Transmission Date: 20100115
  Serious: Yes (Disabling, Other)
  Sender: FDA-Public Use
  Company Number: 2009AP002784

PATIENT
  Age: 56 Year
  Sex: Female

DRUGS (1)
  1. PENTOXIFYLLINE [Suspect]
     Indication: IMPAIRED HEALING
     Dosage: 400 MG, BID, PO
     Route: 048
     Dates: start: 20090401, end: 20090101

REACTIONS (13)
  - AMNESIA [None]
  - BLOOD PRESSURE FLUCTUATION [None]
  - CHEST PAIN [None]
  - CONFUSIONAL STATE [None]
  - DIZZINESS [None]
  - EPISTAXIS [None]
  - HEADACHE [None]
  - NASAL CONGESTION [None]
  - PRURITUS [None]
  - THROMBOSIS [None]
  - TINNITUS [None]
  - VISION BLURRED [None]
  - WEIGHT DECREASED [None]
